FAERS Safety Report 10994282 (Version 1)
Quarter: 2015Q2

REPORT INFORMATION
  Report Type: Spontaneous
  Country: GB (occurrence: GB)
  Receive Date: 20150407
  Receipt Date: 20150407
  Transmission Date: 20150821
  Serious: Yes (Other)
  Sender: FDA-Public Use
  Company Number: GB-CIPLA LTD.-2015GB02701

PATIENT

DRUGS (12)
  1. DEXAMETHASONE. [Concomitant]
     Active Substance: DEXAMETHASONE
  2. EPIRUBICIN [Suspect]
     Active Substance: EPIRUBICIN
     Indication: CHEMOTHERAPY
     Dosage: 140 MG EVERY 3 WEEKS FOR 6 CYCLES
     Route: 042
     Dates: start: 20120613, end: 20121003
  3. CYCLOPHOSPHAMIDE. [Suspect]
     Active Substance: CYCLOPHOSPHAMIDE
     Indication: CHEMOTHERAPY
     Dosage: 900 MG, EVERY 3 WEEKS FOR 6 CYCLES
     Route: 042
     Dates: start: 20120613, end: 20121003
  4. 5-FLUOROURACIL [Suspect]
     Active Substance: FLUOROURACIL
     Indication: CHEMOTHERAPY
     Dosage: 900 MG EVERY 3 WEEKS FOR 6 CYCLES
     Route: 042
     Dates: start: 20120613, end: 20121003
  5. APREPITANT. [Concomitant]
     Active Substance: APREPITANT
  6. BENZYDAMINE [Concomitant]
     Active Substance: BENZYDAMINE
  7. DOMPERIDONE [Concomitant]
     Active Substance: DOMPERIDONE
  8. TRAMADOL [Concomitant]
     Active Substance: TRAMADOL
  9. OMEPRAZOLE. [Concomitant]
     Active Substance: OMEPRAZOLE
  10. ONDANSETRON [Concomitant]
     Active Substance: ONDANSETRON
  11. PEGFILGRASTIM [Concomitant]
     Active Substance: PEGFILGRASTIM
  12. PARACETAMOL [Concomitant]
     Active Substance: ACETAMINOPHEN

REACTIONS (2)
  - Pulmonary fibrosis [Recovered/Resolved with Sequelae]
  - Dyspnoea [Recovering/Resolving]

NARRATIVE: CASE EVENT DATE: 20121023
